FAERS Safety Report 25634212 (Version 4)
Quarter: 2025Q4

REPORT INFORMATION
  Report Type: Spontaneous
  Country: CN (occurrence: CN)
  Receive Date: 20250801
  Receipt Date: 20251204
  Transmission Date: 20260117
  Serious: Yes (Other)
  Sender: MERCK SHARP & DOHME LLC
  Company Number: CN-009507513-2314332

PATIENT
  Age: 43 Year
  Sex: Male

DRUGS (3)
  1. TEMODAL [Suspect]
     Active Substance: TEMOZOLOMIDE
     Indication: Glioblastoma
     Dosage: TIME INTERVAL: CYCLICAL: CYCLE 1 (ADJUVANT), 150 MG/M 2 ONCE DAILY FOR 5 DAYS FOLLOWED BY 23 DAYS...
     Route: 048
     Dates: start: 20250314
  2. TEMODAL [Suspect]
     Active Substance: TEMOZOLOMIDE
     Indication: Glioblastoma
     Dosage: TIME INTERVAL: CYCLICAL: STARTING FROM CYCLE 2 (ADJUVANT), 200 MG/M2 ONCE DAILY FOR 5 DAYS FOLLOW...
     Route: 048
     Dates: start: 20250411
  3. TEMODAL [Suspect]
     Active Substance: TEMOZOLOMIDE
     Indication: Glioblastoma
     Dosage: 75 MG/M2 DAILY FOR 42 DAYS CONCOMITANT WITH LOCAL RADIOTHERAPY (60 GY ADMINISTERED IN 30 FRACTION...
     Route: 048
     Dates: start: 20250103, end: 20250214

REACTIONS (6)
  - Urinary retention [Unknown]
  - Glioblastoma [Unknown]
  - Recurrent cancer [Unknown]
  - Mass [Unknown]
  - Tumour necrosis [Unknown]
  - Bone lesion [Unknown]

NARRATIVE: CASE EVENT DATE: 20250211
